FAERS Safety Report 7440165-0 (Version None)
Quarter: 2011Q2

REPORT INFORMATION
  Report Type: 
  Country: None (occurrence: None)
  Receive Date: 20110427
  Receipt Date: 20110422
  Transmission Date: 20111010
  Serious: Yes (Other)
  Sender: FDA-Public Use
  Company Number: US-ROCHE-773185

PATIENT
  Age: 49 Year
  Sex: Female
  Weight: 63.5 kg

DRUGS (3)
  1. KLONOPIN [Suspect]
     Indication: INSOMNIA
     Route: 065
     Dates: start: 19910101
  2. KLONOPIN [Suspect]
     Route: 065
     Dates: start: 20110301
  3. ACETYLSALICYLIC ACID SRT [Concomitant]

REACTIONS (3)
  - DRUG EFFECT DECREASED [None]
  - DIABETES MELLITUS [None]
  - WEIGHT INCREASED [None]
